FAERS Safety Report 10069111 (Version 2)
Quarter: 2014Q2

REPORT INFORMATION
  Report Type: Report from Study
  Country: CO (occurrence: CO)
  Receive Date: 20140409
  Receipt Date: 20140414
  Transmission Date: 20141212
  Serious: Yes (Death, Hospitalization)
  Sender: FDA-Public Use
  Company Number: CO-ABBVIE-14P-036-1224189-00

PATIENT
  Age: 47 Year
  Sex: Female
  Weight: 42 kg

DRUGS (2)
  1. ZEMPLAR [Suspect]
     Indication: HYPERPARATHYROIDISM SECONDARY
     Route: 048
     Dates: start: 20140131, end: 20140323
  2. INSULIN GLARGINE [Concomitant]
     Indication: PRODUCT USED FOR UNKNOWN INDICATION
     Dosage: 3 UI

REACTIONS (3)
  - Cardio-respiratory arrest [Fatal]
  - Acute coronary syndrome [Unknown]
  - Arterial occlusive disease [Unknown]
